FAERS Safety Report 17071065 (Version 1)
Quarter: 2019Q4

REPORT INFORMATION
  Report Type: Spontaneous
  Country: HU (occurrence: HU)
  Receive Date: 20191125
  Receipt Date: 20191125
  Transmission Date: 20200122
  Serious: Yes (Other)
  Sender: FDA-Public Use
  Company Number: HU-PFIZER INC-2019502409

PATIENT
  Age: 74 Year
  Sex: Female

DRUGS (19)
  1. AFINITOR [Suspect]
     Active Substance: EVEROLIMUS
     Dosage: 1 DF, QD
     Dates: start: 20170415, end: 201711
  2. ATORVOX [Concomitant]
     Active Substance: ATORVASTATIN
     Dosage: 20 MG, QD
  3. INLYTA [Concomitant]
     Active Substance: AXITINIB
     Dosage: 2 DF, QD
     Route: 065
     Dates: start: 201711
  4. AMLODIPINE BESILATE [Suspect]
     Active Substance: AMLODIPINE BESYLATE
     Dosage: 5 MG, BID
  5. CITROKALCIUM [Concomitant]
     Dosage: 1 DF, QD
  6. AFLAMIN [Concomitant]
     Indication: PAIN
     Dosage: UNK
  7. ZOLEDRONIC ACID [Suspect]
     Active Substance: ZOLEDRONIC ACID
     Dosage: 2 MG  (1 AMPOULE), UNK
     Route: 065
     Dates: start: 20190629
  8. VITAMIN D [Suspect]
     Active Substance: VITAMIN D NOS
     Dosage: UNK
     Route: 065
  9. KETOSTERIL [Concomitant]
     Active Substance: AMINO ACIDS, SOURCE UNSPECIFIED
     Indication: PAIN
     Dosage: 2 DF, QD
     Dates: start: 20190527
  10. NEODOLPASSE [Concomitant]
     Active Substance: DICLOFENAC SODIUM\ORPHENADRINE CITRATE
     Indication: PAIN
     Dosage: UNK
  11. FENTANYL. [Suspect]
     Active Substance: FENTANYL
     Indication: PAIN
     Dosage: UNK
  12. VOTRIENT [Suspect]
     Active Substance: PAZOPANIB HYDROCHLORIDE
     Dosage: UNK
     Dates: start: 20150925, end: 201703
  13. KETOSTERIL [Concomitant]
     Active Substance: AMINO ACIDS, SOURCE UNSPECIFIED
     Dosage: UNK
     Dates: start: 201706, end: 20190527
  14. ZOLEDRONIC ACID [Suspect]
     Active Substance: ZOLEDRONIC ACID
     Dosage: 1 DF (1 AMPOULE), UNK
     Dates: start: 20150915
  15. SORBIFER [Concomitant]
     Active Substance: FERROUS SULFATE
     Indication: IRON DEFICIENCY ANAEMIA
     Dosage: UNK
  16. ZOLEDRONIC ACID [Suspect]
     Active Substance: ZOLEDRONIC ACID
     Dosage: 0.5 DF (1/2 AMPOULE), UNK
     Dates: start: 20190425
  17. VALSARTAN. [Suspect]
     Active Substance: VALSARTAN
     Dosage: UNK
  18. ESOMEPRAZOL [Concomitant]
     Active Substance: ESOMEPRAZOLE
     Dosage: 20 MG, QD
  19. ZOLEDRONIC ACID [Suspect]
     Active Substance: ZOLEDRONIC ACID
     Dosage: 3 MG, UNK
     Dates: start: 20180108

REACTIONS (16)
  - Metastases to bone [Unknown]
  - Blood cholesterol increased [Unknown]
  - Glomerular filtration rate decreased [Unknown]
  - Epistaxis [Unknown]
  - Diarrhoea [Recovered/Resolved]
  - Hepatic mass [Unknown]
  - Hypertension [Recovered/Resolved]
  - Hypertension [Unknown]
  - Metastases to lung [Unknown]
  - Renal impairment [Unknown]
  - Iron deficiency anaemia [Unknown]
  - Renal disorder [Unknown]
  - Pulmonary mass [Unknown]
  - Hepatic steatosis [Unknown]
  - Mitral valve incompetence [Unknown]
  - Malignant neoplasm progression [Unknown]

NARRATIVE: CASE EVENT DATE: 20170421
